FAERS Safety Report 24145641 (Version 1)
Quarter: 2024Q3

REPORT INFORMATION
  Report Type: Report from Study
  Country: GB (occurrence: US)
  Receive Date: 20240729
  Receipt Date: 20240729
  Transmission Date: 20241017
  Serious: Yes (Other)
  Sender: ROCHE
  Company Number: GB-ROCHE-10000028752

PATIENT

DRUGS (3)
  1. GLOFITAMAB [Suspect]
     Active Substance: GLOFITAMAB
     Indication: Diffuse large B-cell lymphoma
     Route: 065
  2. GLOFITAMAB [Suspect]
     Active Substance: GLOFITAMAB
     Indication: Lymphoma transformation
  3. GLOFITAMAB [Suspect]
     Active Substance: GLOFITAMAB
     Indication: Non-Hodgkin^s lymphoma

REACTIONS (4)
  - Infection [Unknown]
  - Cytokine release syndrome [Unknown]
  - Immune effector cell-associated neurotoxicity syndrome [Unknown]
  - Neutropenia [Unknown]
